FAERS Safety Report 21628990 (Version 1)
Quarter: 2022Q4

REPORT INFORMATION
  Report Type: Spontaneous
  Country: US (occurrence: US)
  Receive Date: 20221122
  Receipt Date: 20221122
  Transmission Date: 20230112
  Serious: No
  Sender: FDA-Public Use
  Company Number: US-SA-SAC20221117000087

PATIENT
  Sex: Male

DRUGS (11)
  1. DUPIXENT [Suspect]
     Active Substance: DUPILUMAB
     Indication: Dermatitis atopic
     Dosage: 1 DF, QOW
     Route: 058
     Dates: start: 20200828
  2. RINVOQ [Concomitant]
     Active Substance: UPADACITINIB
     Dosage: ER TAB
  3. CLOBETASOL [Concomitant]
     Active Substance: CLOBETASOL
  4. EUCRISA [Concomitant]
     Active Substance: CRISABOROLE
  5. LITHIUM CARBONATE [Concomitant]
     Active Substance: LITHIUM CARBONATE
  6. TOPIRAMATE [Concomitant]
     Active Substance: TOPIRAMATE
  7. TYLENOL [Concomitant]
     Active Substance: ACETAMINOPHEN
  8. GINKGO [Concomitant]
     Active Substance: GINKGO
  9. LEVETIRACETAM [Concomitant]
     Active Substance: LEVETIRACETAM
  10. RINVOQ [Concomitant]
     Active Substance: UPADACITINIB
     Dosage: ER TAB
  11. ST. JOHN^S WORT [Concomitant]
     Active Substance: ST. JOHN^S WORT

REACTIONS (3)
  - Diarrhoea [Not Recovered/Not Resolved]
  - Abdominal discomfort [Not Recovered/Not Resolved]
  - Decreased appetite [Not Recovered/Not Resolved]
